FAERS Safety Report 5536037-9 (Version None)
Quarter: 2007Q4

REPORT INFORMATION
  Report Type: 
  Country: None (occurrence: None)
  Receive Date: 20071206
  Receipt Date: 20071130
  Transmission Date: 20080405
  Serious: Yes (Death, Other)
  Sender: FDA-Public Use
  Company Number: JP-ABBOTT-07P-087-0423199-00

PATIENT
  Sex: Female
  Weight: 57 kg

DRUGS (8)
  1. CEFZON [Suspect]
     Indication: WOUND ABSCESS
     Route: 048
     Dates: start: 20071023, end: 20071028
  2. CEFZON [Suspect]
     Route: 048
     Dates: start: 20070726
  3. LOXOPROFEN SODIUM [Suspect]
     Indication: WOUND ABSCESS
     Route: 048
     Dates: start: 20071023, end: 20071027
  4. MISOPROSTOL [Suspect]
     Indication: WOUND ABSCESS
     Route: 048
     Dates: start: 20071023, end: 20071027
  5. DIAZEPAM [Suspect]
     Indication: CONVULSION
     Dates: start: 20071030, end: 20071030
  6. FLUVASTATIN [Concomitant]
     Indication: DRUG USE FOR UNKNOWN INDICATION
     Dates: start: 20070329, end: 20071028
  7. CANDESARTAN CILEXETIL [Concomitant]
     Indication: DRUG USE FOR UNKNOWN INDICATION
     Dates: start: 20070329, end: 20071028
  8. AZELNIDIPINE [Concomitant]
     Indication: DRUG USE FOR UNKNOWN INDICATION
     Dates: start: 20070329, end: 20071028

REACTIONS (15)
  - ACUTE HEPATIC FAILURE [None]
  - ASPARTATE AMINOTRANSFERASE INCREASED [None]
  - BLOOD CREATININE INCREASED [None]
  - BLOOD PRESSURE DECREASED [None]
  - CARDIAC ARREST [None]
  - CONVULSION [None]
  - DEPRESSED LEVEL OF CONSCIOUSNESS [None]
  - GLOSSOPTOSIS [None]
  - HEART RATE DECREASED [None]
  - HEPATITIS FULMINANT [None]
  - HYPERAMMONAEMIA [None]
  - MOVEMENT DISORDER [None]
  - MUSCLE DISORDER [None]
  - RENAL FAILURE ACUTE [None]
  - TONGUE PARALYSIS [None]
